FAERS Safety Report 4477455-X (Version None)
Quarter: 2004Q4

REPORT INFORMATION
  Report Type: 
  Country: None (occurrence: None)
  Receive Date: 20041018
  Receipt Date: 20041013
  Transmission Date: 20050328
  Serious: Yes (Life-Threatening)
  Sender: FDA-Public Use
  Company Number: PHBS2004BE13723

PATIENT
  Age: 2 Day
  Sex: Male

DRUGS (2)
  1. TRILEPTAL [Suspect]
     Route: 064
  2. TRILEPTAL [Suspect]

REACTIONS (3)
  - BREAST FEEDING [None]
  - CYANOSIS NEONATAL [None]
  - DRUG EXPOSURE DURING PREGNANCY [None]
